FAERS Safety Report 4566048-1 (Version None)
Quarter: 2005Q1

REPORT INFORMATION
  Report Type: 
  Country: None (occurrence: None)
  Receive Date: 20050131
  Receipt Date: 20041229
  Transmission Date: 20050727
  Serious: Yes (Hospitalization)
  Sender: FDA-Public Use
  Company Number: JP-MERCK-0501USA02463

PATIENT
  Age: 80 Year
  Sex: Female

DRUGS (1)
  1. PRIMAXIN [Suspect]
     Indication: PNEUMONIA
     Route: 042
     Dates: start: 20041214, end: 20041222

REACTIONS (1)
  - INTERSTITIAL LUNG DISEASE [None]
